FAERS Safety Report 7934941-5 (Version None)
Quarter: 2011Q4

REPORT INFORMATION
  Report Type: 
  Country: None (occurrence: None)
  Receive Date: 20111122
  Receipt Date: 20111115
  Transmission Date: 20120403
  Serious: Yes (Life-Threatening, Hospitalization)
  Sender: FDA-Public Use
  Company Number: FR-NAPPMUNDI-GBR-2011-0009028

PATIENT
  Sex: Male
  Weight: 73.9 kg

DRUGS (12)
  1. BISOPROLOL FUMARATE [Concomitant]
     Dosage: 25 MG, UNK
  2. ACETAMINOPHEN [Concomitant]
  3. PANTOPRAZOLE [Concomitant]
  4. LYRICA [Concomitant]
     Indication: AMPUTATION STUMP PAIN
     Dosage: 200 MG, BID
     Dates: start: 20111018
  5. CORDARONE [Concomitant]
  6. PLAVIX [Concomitant]
  7. LYRICA [Concomitant]
     Dosage: 125 MG, BID
  8. CLONAZEPAM [Concomitant]
  9. OXYCONTIN [Suspect]
     Indication: PAIN
     Dosage: 20 MG, BID
     Route: 048
     Dates: start: 20111026, end: 20111028
  10. ASPIRIN [Concomitant]
  11. PERMIXON [Concomitant]
     Dosage: 160 MG, UNK
  12. LYRICA [Concomitant]
     Dosage: 150 MG, BID
     Dates: start: 20111011

REACTIONS (3)
  - DEHYDRATION [None]
  - OVERDOSE [None]
  - PNEUMONIA ASPIRATION [None]
